FAERS Safety Report 25235581 (Version 1)
Quarter: 2025Q2

REPORT INFORMATION
  Report Type: Spontaneous
  Country: US (occurrence: US)
  Receive Date: 20250424
  Receipt Date: 20250424
  Transmission Date: 20250717
  Serious: No
  Sender: BRISTOL-MYERS SQUIBB COMPANY
  Company Number: US-BRISTOL-MYERS SQUIBB COMPANY-2025-060608

PATIENT
  Age: 69 Year

DRUGS (2)
  1. OPDIVO [Suspect]
     Active Substance: NIVOLUMAB
     Indication: Product used for unknown indication
     Dosage: 240MG AND 120MG
     Route: 042
  2. OPDIVO [Suspect]
     Active Substance: NIVOLUMAB
     Dosage: 240MG AND 120MG
     Route: 042
     Dates: start: 20250417

REACTIONS (1)
  - Off label use [Unknown]
